FAERS Safety Report 19036077 (Version 2)
Quarter: 2021Q2

REPORT INFORMATION
  Report Type: Report from Study
  Country: PE (occurrence: PE)
  Receive Date: 20210321
  Receipt Date: 20210418
  Transmission Date: 20210717
  Serious: Yes (Other)
  Sender: FDA-Public Use
  Company Number: NVSC2020PE094585

PATIENT
  Age: 49 Year
  Sex: Female

DRUGS (4)
  1. SANDOSTATIN LAR DEPOT [Suspect]
     Active Substance: OCTREOTIDE ACETATE
     Indication: ACROMEGALY
     Dosage: 20 MG, EVERY 45 DAYS (SOLUTION)
     Route: 030
     Dates: start: 20120102
  2. CHLORINE [Concomitant]
     Active Substance: CHLORINE
     Indication: PRODUCT USED FOR UNKNOWN INDICATION
     Dosage: 3 DF (AFTER DINNER) (FORMULATION: DROPS) (START DATE: MAY)
     Route: 065
  3. SANDOSTATIN LAR DEPOT [Suspect]
     Active Substance: OCTREOTIDE ACETATE
     Dosage: 20 MG, EVERY 45 DAYS (SOLUTION)
     Route: 030
     Dates: start: 20200120, end: 20210119
  4. SANDOSTATIN LAR DEPOT [Suspect]
     Active Substance: OCTREOTIDE ACETATE

REACTIONS (17)
  - Blood pressure increased [Recovered/Resolved]
  - Erythema [Unknown]
  - Feeling abnormal [Recovered/Resolved]
  - Oropharyngeal pain [Recovered/Resolved]
  - Vulvovaginal burning sensation [Not Recovered/Not Resolved]
  - Balance disorder [Unknown]
  - Fear [Recovered/Resolved]
  - Haematuria [Unknown]
  - Inappropriate schedule of product administration [Unknown]
  - Escherichia urinary tract infection [Unknown]
  - Vomiting [Recovered/Resolved]
  - Mental disorder [Recovered/Resolved]
  - Malaise [Unknown]
  - Skin exfoliation [Unknown]
  - Headache [Recovered/Resolved]
  - Alopecia [Unknown]
  - Gait disturbance [Unknown]

NARRATIVE: CASE EVENT DATE: 20120102
